FAERS Safety Report 11698427 (Version 1)
Quarter: 2015Q4

REPORT INFORMATION
  Report Type: Spontaneous
  Country: US (occurrence: US)
  Receive Date: 20151104
  Receipt Date: 20151104
  Transmission Date: 20160304
  Serious: No
  Sender: FDA-Public Use
  Company Number: US-APOPHARMA USA, INC.-2012AP001324

PATIENT
  Age: 8 Year
  Sex: Female
  Weight: 26 kg

DRUGS (4)
  1. FERRIPROX [Suspect]
     Active Substance: DEFERIPRONE
     Indication: IRON METABOLISM DISORDER
     Route: 048
     Dates: start: 20111230
  2. KLONOPIN [Concomitant]
     Active Substance: CLONAZEPAM
     Route: 048
  3. AMOXICILLIN. [Concomitant]
     Active Substance: AMOXICILLIN
     Route: 048
  4. BACLOFEN. [Concomitant]
     Active Substance: BACLOFEN
     Route: 038

REACTIONS (3)
  - Urticaria [Recovering/Resolving]
  - Pharyngitis streptococcal [Recovering/Resolving]
  - Rash [Recovering/Resolving]

NARRATIVE: CASE EVENT DATE: 20120417
